FAERS Safety Report 10077531 (Version 3)
Quarter: 2015Q2

REPORT INFORMATION
  Report Type: Report from Study
  Country: KR (occurrence: KR)
  Receive Date: 20140414
  Receipt Date: 20150522
  Transmission Date: 20150821
  Serious: Yes (Hospitalization)
  Sender: FDA-Public Use
  Company Number: KR-009507513-1404KOR006095

PATIENT
  Age: 60 Year
  Sex: Female

DRUGS (39)
  1. INTERFERON ALFA-2B [Suspect]
     Active Substance: INTERFERON ALFA-2B
     Dosage: TOTAL DAILY DOSE: 80 MCG QW
     Route: 058
     Dates: start: 20141104, end: 20141104
  2. INTERFERON ALFA-2B [Suspect]
     Active Substance: INTERFERON ALFA-2B
     Dosage: TOTAL DAILY DOSE: 80 MCG QW
     Route: 058
     Dates: start: 20140225, end: 20140225
  3. RIBAVIRIN. [Suspect]
     Active Substance: RIBAVIRIN
     Dosage: TOTAL DAILY DOSE: 600 MG, QD
     Route: 048
     Dates: start: 20140225, end: 20140811
  4. INTERFERON ALFA-2B [Suspect]
     Active Substance: INTERFERON ALFA-2B
     Dosage: TOTAL DAILY DOSE: 50 MCG QW
     Route: 058
     Dates: start: 20140610, end: 20140610
  5. INTERFERON ALFA-2B [Suspect]
     Active Substance: INTERFERON ALFA-2B
     Dosage: TOTAL DAILY DOSE: 80 MCG QW
     Route: 058
     Dates: start: 20140826, end: 20140826
  6. INTERFERON ALFA-2B [Suspect]
     Active Substance: INTERFERON ALFA-2B
     Dosage: TOTAL DAILY DOSE: 80 MCG QW
     Route: 058
     Dates: start: 20141021, end: 20141021
  7. BOCEPREVIR [Suspect]
     Active Substance: BOCEPREVIR
     Indication: HEPATITIS C
     Dosage: 4 CAPSULE, TID
     Route: 048
     Dates: start: 20140113, end: 20141117
  8. INTERFERON ALFA-2B [Suspect]
     Active Substance: INTERFERON ALFA-2B
     Indication: HEPATITIS C
     Dosage: TOTAL DAILY DOSE: 120 MCG QW
     Route: 058
     Dates: start: 20131214, end: 20140211
  9. INTERFERON ALFA-2B [Suspect]
     Active Substance: INTERFERON ALFA-2B
     Dosage: TOTAL DAILY DOSE: 50 MCG QW
     Route: 058
     Dates: start: 20140311, end: 20140311
  10. INTERFERON ALFA-2B [Suspect]
     Active Substance: INTERFERON ALFA-2B
     Dosage: TOTAL DAILY DOSE: 50 MCG QW
     Route: 058
     Dates: start: 20140624, end: 20140624
  11. INTERFERON ALFA-2B [Suspect]
     Active Substance: INTERFERON ALFA-2B
     Dosage: TOTAL DAILY DOSE: 80 MCG QW
     Route: 058
     Dates: start: 20140708, end: 20140708
  12. INTERFERON ALFA-2B [Suspect]
     Active Substance: INTERFERON ALFA-2B
     Dosage: TOTAL DAILY DOSE: 80 MCG QW
     Route: 058
     Dates: start: 20140729, end: 20140729
  13. INTERFERON ALFA-2B [Suspect]
     Active Substance: INTERFERON ALFA-2B
     Dosage: TOTAL DAILY DOSE: 50 MCG QW
     Route: 058
     Dates: start: 20140819, end: 20140819
  14. INTERFERON ALFA-2B [Suspect]
     Active Substance: INTERFERON ALFA-2B
     Dosage: TOTAL DAILY DOSE: 50 MCG QW
     Route: 058
     Dates: start: 20140923, end: 20140923
  15. INTERFERON ALFA-2B [Suspect]
     Active Substance: INTERFERON ALFA-2B
     Dosage: TOTAL DAILY DOSE: 80 MCG QW
     Route: 058
     Dates: start: 20141014, end: 20141014
  16. INTERFERON ALFA-2B [Suspect]
     Active Substance: INTERFERON ALFA-2B
     Dosage: TOTAL DAILY DOSE: 50 MCG QW
     Route: 058
     Dates: start: 20141111, end: 20141111
  17. RIBAVIRIN. [Suspect]
     Active Substance: RIBAVIRIN
     Dosage: TOTAL DAILY DOSE: 400 MG, QD
     Route: 048
     Dates: start: 20140812, end: 20141124
  18. INTERFERON ALFA-2B [Suspect]
     Active Substance: INTERFERON ALFA-2B
     Dosage: TOTAL DAILY DOSE: 50 MCG QW
     Route: 058
     Dates: start: 20140318, end: 20140318
  19. INTERFERON ALFA-2B [Suspect]
     Active Substance: INTERFERON ALFA-2B
     Dosage: TOTAL DAILY DOSE: 80 MCG QW
     Route: 058
     Dates: start: 20140812, end: 20140812
  20. INTERFERON ALFA-2B [Suspect]
     Active Substance: INTERFERON ALFA-2B
     Dosage: TOTAL DAILY DOSE: 50 MCG QW
     Route: 058
     Dates: start: 20141028, end: 20141028
  21. RIBAVIRIN. [Suspect]
     Active Substance: RIBAVIRIN
     Indication: HEPATITIS C
     Dosage: TOTAL DAILY DOSE: 1200 MG, QD
     Route: 048
     Dates: start: 20131215, end: 20140126
  22. INTERFERON ALFA-2B [Suspect]
     Active Substance: INTERFERON ALFA-2B
     Dosage: TOTAL DAILY DOSE: 80 MCG QW
     Route: 058
     Dates: start: 20140218, end: 20140218
  23. INTERFERON ALFA-2B [Suspect]
     Active Substance: INTERFERON ALFA-2B
     Dosage: TOTAL DAILY DOSE: 50 MCG QW
     Route: 058
     Dates: start: 20140304, end: 20140304
  24. INTERFERON ALFA-2B [Suspect]
     Active Substance: INTERFERON ALFA-2B
     Dosage: TOTAL DAILY DOSE: 80 MCG QW
     Route: 058
     Dates: start: 20140325, end: 20140603
  25. INTERFERON ALFA-2B [Suspect]
     Active Substance: INTERFERON ALFA-2B
     Dosage: TOTAL DAILY DOSE: 80 MCG QW
     Route: 058
     Dates: start: 20140715, end: 20140715
  26. INTERFERON ALFA-2B [Suspect]
     Active Substance: INTERFERON ALFA-2B
     Dosage: TOTAL DAILY DOSE: 50 MCG QW
     Route: 058
     Dates: start: 20140805, end: 20140805
  27. INTERFERON ALFA-2B [Suspect]
     Active Substance: INTERFERON ALFA-2B
     Dosage: TOTAL DAILY DOSE: 50 MCG QW
     Route: 058
     Dates: start: 20140916, end: 20140916
  28. RIBAVIRIN. [Suspect]
     Active Substance: RIBAVIRIN
     Dosage: TOTAL DAILY DOSE: 800 MG, QD
     Route: 048
     Dates: start: 20140204, end: 20140224
  29. INTERFERON ALFA-2B [Suspect]
     Active Substance: INTERFERON ALFA-2B
     Dosage: TOTAL DAILY DOSE: 50 MCG QW
     Route: 058
     Dates: start: 20140722, end: 20140722
  30. INTERFERON ALFA-2B [Suspect]
     Active Substance: INTERFERON ALFA-2B
     Dosage: TOTAL DAILY DOSE: 50 MCG QW
     Route: 058
     Dates: start: 20140902, end: 20140902
  31. INTERFERON ALFA-2B [Suspect]
     Active Substance: INTERFERON ALFA-2B
     Dosage: TOTAL DAILY DOSE: 50 MCG QW
     Route: 058
     Dates: start: 20141118, end: 20141118
  32. URSA TABLETS [Concomitant]
     Dosage: UNK
     Dates: start: 20060302
  33. LEGALON [Concomitant]
     Active Substance: MILK THISTLE
     Dosage: 140 MG, UNK
     Dates: start: 20060302
  34. ORODIPINE [Concomitant]
     Indication: HYPERTENSION
     Dosage: ABOUT 10 YEARS AGO
     Dates: start: 2004
  35. INTERFERON ALFA-2B [Suspect]
     Active Substance: INTERFERON ALFA-2B
     Dosage: TOTAL DAILY DOSE: 80 MCG QW
     Route: 058
     Dates: start: 20140617, end: 20140617
  36. INTERFERON ALFA-2B [Suspect]
     Active Substance: INTERFERON ALFA-2B
     Dosage: TOTAL DAILY DOSE: 80 MCG QW
     Route: 058
     Dates: start: 20140930, end: 20140930
  37. INTERFERON ALFA-2B [Suspect]
     Active Substance: INTERFERON ALFA-2B
     Dosage: TOTAL DAILY DOSE: 50 MCG QW
     Route: 058
     Dates: start: 20141007, end: 20141007
  38. RIBAVIRIN. [Suspect]
     Active Substance: RIBAVIRIN
     Dosage: TOTAL DAILY DOSE: 600 MG, QD
     Route: 048
     Dates: start: 20140127, end: 20140203
  39. ASPIRIN PROTECT [Concomitant]
     Active Substance: ASPIRIN
     Dosage: 100 MG, ABOUT 10 YEARS AGO
     Dates: start: 2004

REACTIONS (4)
  - Depression [Recovered/Resolved]
  - Nausea [Recovered/Resolved]
  - Vomiting [Recovered/Resolved]
  - Insomnia [Recovered/Resolved]

NARRATIVE: CASE EVENT DATE: 20140325
